FAERS Safety Report 14949760 (Version 3)
Quarter: 2019Q1

REPORT INFORMATION
  Report Type: Report from Study
  Country: US (occurrence: US)
  Receive Date: 20180529
  Receipt Date: 20190215
  Transmission Date: 20190417
  Serious: Yes (Hospitalization, Other)
  Sender: FDA-Public Use
  Company Number: US-BIOGEN-2018BI00586333

PATIENT
  Age: 44 Year
  Sex: Female

DRUGS (2)
  1. TECFIDERA [Suspect]
     Active Substance: DIMETHYL FUMARATE
     Dosage: MAINTENANCE DOSE
     Route: 048
     Dates: start: 20180502, end: 20181126
  2. TECFIDERA [Suspect]
     Active Substance: DIMETHYL FUMARATE
     Indication: MULTIPLE SCLEROSIS
     Dosage: STARTING DOSE
     Route: 048
     Dates: start: 201805, end: 201805

REACTIONS (7)
  - Fall [Recovered/Resolved]
  - Hypertension [Unknown]
  - Blindness transient [Recovered/Resolved]
  - Head injury [Recovered/Resolved]
  - Memory impairment [Unknown]
  - Balance disorder [Not Recovered/Not Resolved]
  - Enzyme level increased [Unknown]

NARRATIVE: CASE EVENT DATE: 20180514
